FAERS Safety Report 7908034-7 (Version None)
Quarter: 2011Q4

REPORT INFORMATION
  Report Type: 
  Country: None (occurrence: None)
  Receive Date: 20111110
  Receipt Date: 20111103
  Transmission Date: 20120403
  Serious: Yes (Other)
  Sender: FDA-Public Use
  Company Number: US-AMGEN-USASP2011057343

PATIENT
  Age: 61 Year
  Sex: Female

DRUGS (3)
  1. MEDROL [Concomitant]
     Dosage: UNK
  2. ENBREL [Suspect]
     Indication: RHEUMATOID ARTHRITIS
     Dosage: 50 MG, QWK
     Dates: start: 20110701
  3. METHOTREXATE [Concomitant]
     Dosage: UNK

REACTIONS (1)
  - DYSPNOEA [None]
